FAERS Safety Report 23759313 (Version 1)
Quarter: 2024Q2

REPORT INFORMATION
  Report Type: Spontaneous
  Country: US (occurrence: None)
  Receive Date: 20240418
  Receipt Date: 20240418
  Transmission Date: 20240716
  Serious: No
  Sender: FDA-Public Use
  Company Number: US-ROCHE-3326995

PATIENT
  Sex: Female
  Weight: 108.96 kg

DRUGS (1)
  1. ESBRIET [Suspect]
     Active Substance: PIRFENIDONE
     Indication: Idiopathic pulmonary fibrosis
     Dosage: THREE PILLS, THREE TIMES A DAY ;ONGOING: YES
     Route: 048
     Dates: start: 20221114

REACTIONS (2)
  - Insomnia [Unknown]
  - Feeling abnormal [Unknown]
